FAERS Safety Report 17327730 (Version 1)
Quarter: 2020Q1

REPORT INFORMATION
  Report Type: Spontaneous
  Country: US (occurrence: US)
  Receive Date: 20200127
  Receipt Date: 20200127
  Transmission Date: 20200409
  Serious: No
  Sender: FDA-Public Use
  Company Number: US-BAYER-2020-012062

PATIENT
  Age: 8 Year
  Sex: Female

DRUGS (3)
  1. VITRAKVI [Suspect]
     Active Substance: LAROTRECTINIB
     Indication: OSTEOSARCOMA
     Dosage: 80MG (OR MAYBE 90MG) ORAL SOLUTION TWICE A DAY
     Route: 048
     Dates: start: 201911
  2. VITRAKVI [Suspect]
     Active Substance: LAROTRECTINIB
     Indication: METASTASES TO LUNG
  3. IFOSFAMIDE. [Concomitant]
     Active Substance: IFOSFAMIDE
     Indication: OSTEOSARCOMA METASTATIC

REACTIONS (2)
  - Gait inability [Recovered/Resolved]
  - Pain in extremity [Recovered/Resolved]
